FAERS Safety Report 7780460-9 (Version None)
Quarter: 2011Q3

REPORT INFORMATION
  Report Type: 
  Country: None (occurrence: None)
  Receive Date: 20110923
  Receipt Date: 20110909
  Transmission Date: 20111222
  Serious: Yes (Hospitalization, Other)
  Sender: FDA-Public Use
  Company Number: US-ACCORD-010478

PATIENT
  Age: 67 Year
  Sex: Female

DRUGS (3)
  1. MYCOPHENOLATE MOFETIL [Suspect]
     Indication: IMMUNOSUPPRESSANT DRUG THERAPY
  2. TACROLIMUS [Suspect]
     Indication: IMMUNOSUPPRESSANT DRUG THERAPY
  3. PREDNISONE [Suspect]
     Indication: IMMUNOSUPPRESSANT DRUG THERAPY

REACTIONS (9)
  - ACUTE PULMONARY HISTOPLASMOSIS [None]
  - PLEURAL EFFUSION [None]
  - PULMONARY CONGESTION [None]
  - ATELECTASIS [None]
  - PYELONEPHRITIS [None]
  - PULMONARY HILUM MASS [None]
  - KLEBSIELLA TEST POSITIVE [None]
  - LUNG NEOPLASM [None]
  - COMPLICATIONS OF TRANSPLANTED KIDNEY [None]
